FAERS Safety Report 5108941-7 (Version None)
Quarter: 2006Q3

REPORT INFORMATION
  Report Type: 
  Country: None (occurrence: None)
  Receive Date: 20060915
  Receipt Date: 20060915
  Transmission Date: 20061208
  Serious: Yes (Hospitalization)
  Sender: FDA-Public Use
  Company Number: None

PATIENT
  Age: 63 Year
  Sex: Female
  Weight: 67.1324 kg

DRUGS (4)
  1. CARBOPLATIN [Suspect]
     Indication: ACUTE MYELOID LEUKAEMIA
     Dosage: 230 MG OVER 24 HRS X 5 DOSES IV
     Route: 042
     Dates: start: 20060818, end: 20060823
  2. FLUDARABINE [Suspect]
     Indication: ACUTE MYELOID LEUKAEMIA
     Dosage: 24 MG OVER 30 MIN 30 MIN DAILY X 5 IV
     Route: 042
     Dates: start: 20060818, end: 20060823
  3. TOPOTECAN 0.85 MG/M2/DAY [Suspect]
     Indication: ACUTE MYELOID LEUKAEMIA
     Dosage: 1.4 MG OVER 24 HRS X 3 DOSES IV
     Route: 042
     Dates: start: 20060823, end: 20060826
  4. THALIDOMIDE [Suspect]
     Indication: ACUTE MYELOID LEUKAEMIA
     Dosage: 200 MG DAILY PO
     Route: 048
     Dates: start: 20060901

REACTIONS (5)
  - CHEST DISCOMFORT [None]
  - CHEST PAIN [None]
  - DRUG INEFFECTIVE [None]
  - DYSPEPSIA [None]
  - HAEMATOCRIT DECREASED [None]
